FAERS Safety Report 24239803 (Version 2)
Quarter: 2025Q1

REPORT INFORMATION
  Report Type: Spontaneous
  Country: US (occurrence: US)
  Receive Date: 20240822
  Receipt Date: 20250227
  Transmission Date: 20250408
  Serious: No
  Sender: AVADEL CNS PHARMACEUTICALS, LLC
  Company Number: US-AVADEL CNS PHARMACEUTICALS, LLC-2024AVA00950

PATIENT
  Sex: Female

DRUGS (48)
  1. LUMRYZ [Suspect]
     Active Substance: SODIUM OXYBATE
     Indication: Narcolepsy
     Dosage: 7.5 G, ONCE NIGHTLY AT BEDTIME
     Route: 048
     Dates: start: 202405
  2. LUMRYZ [Suspect]
     Active Substance: SODIUM OXYBATE
     Indication: Narcolepsy
     Dosage: 9 G, ONCE NIGHTLY AT BEDTIME
     Route: 048
  3. PLAQUENIL [Concomitant]
     Active Substance: HYDROXYCHLOROQUINE SULFATE
  4. MAGNESIUM OXIDE [Concomitant]
     Active Substance: MAGNESIUM OXIDE
  5. XYZAL [Concomitant]
     Active Substance: LEVOCETIRIZINE DIHYDROCHLORIDE
  6. XOPENEX [Concomitant]
     Active Substance: LEVALBUTEROL HYDROCHLORIDE
  7. PNV 12-IRON-METHYLFOLATE-DHA [Concomitant]
  8. IBUPROFEN [Concomitant]
     Active Substance: IBUPROFEN
  9. FERROUS SULFATE [Concomitant]
     Active Substance: FERROUS SULFATE
  10. UBIQUINOL [Concomitant]
     Active Substance: UBIQUINOL
  11. QVAR [Concomitant]
     Active Substance: BECLOMETHASONE DIPROPIONATE
  12. ALBUTEROL SULFATE [Concomitant]
     Active Substance: ALBUTEROL SULFATE
  13. DIPHENHYDRAMINE HYDROCHLORIDE [Concomitant]
     Active Substance: DIPHENHYDRAMINE HYDROCHLORIDE
  14. FAMOTIDINE [Concomitant]
     Active Substance: FAMOTIDINE
  15. CROMOLYN SODIUM [Concomitant]
     Active Substance: CROMOLYN SODIUM
  16. UBRELVY [Concomitant]
     Active Substance: UBROGEPANT
  17. DEMANNOSE [Concomitant]
     Active Substance: DEMANNOSE
  18. LEVOMEFOLATE CALCIUM [Concomitant]
     Active Substance: LEVOMEFOLATE CALCIUM
  19. PROTRIPTYLINE HYDROCHLORIDE [Concomitant]
     Active Substance: PROTRIPTYLINE HYDROCHLORIDE
  20. MONTELUKAST SODIUM [Concomitant]
     Active Substance: MONTELUKAST SODIUM
  21. ADDERALL [Concomitant]
     Active Substance: AMPHETAMINE ASPARTATE\AMPHETAMINE SULFATE\DEXTROAMPHETAMINE SACCHARATE\DEXTROAMPHETAMINE SULFATE
  22. VITAMIN D3 [Concomitant]
     Active Substance: CHOLECALCIFEROL
  23. ASPIRIN [Concomitant]
     Active Substance: ASPIRIN
  24. VITAMIN C [Concomitant]
     Active Substance: ASCORBIC ACID
  25. ACETAMINOPHEN [Concomitant]
     Active Substance: ACETAMINOPHEN
  26. MENAQUINONE 6 [Concomitant]
     Active Substance: MENAQUINONE 6
  27. COENZYME Q10 [Concomitant]
     Active Substance: DIETARY SUPPLEMENT\UBIDECARENONE
  28. TRAMADOL HCL [Concomitant]
     Active Substance: TRAMADOL HYDROCHLORIDE
  29. SUNOSI [Concomitant]
     Active Substance: SOLRIAMFETOL
  30. VITAMIN B2 [Concomitant]
     Active Substance: RIBOFLAVIN
  31. QUERCETIN [Concomitant]
     Active Substance: QUERCETIN
  32. PYRIDOSTIGMINE BROMIDE EXTENDED RELEASE [Concomitant]
     Active Substance: PYRIDOSTIGMINE BROMIDE
  33. PROPRANOLOL HYDROCHLORIDE [Concomitant]
     Active Substance: PROPRANOLOL HYDROCHLORIDE
     Dosage: 60 MG, ONCE DAILY, PROPRANOLOL HCL ER 60 MG CAP SA 24H
  34. PROMETHAZINE HYDROCHLORIDE [Concomitant]
     Active Substance: PROMETHAZINE HYDROCHLORIDE
  35. FERROUS GLUCONATE [Concomitant]
     Active Substance: FERROUS GLUCONATE
  36. ONDANSETRON [Concomitant]
     Active Substance: ONDANSETRON
  37. BOTOX [Concomitant]
     Active Substance: ONABOTULINUMTOXINA
  38. SLYND [Concomitant]
     Active Substance: DROSPIRENONE
  39. MELOXICAM [Concomitant]
     Active Substance: MELOXICAM
  40. MELATONIN [Concomitant]
     Active Substance: MELATONIN
  41. MAGNESIUM GLYCINATE [Concomitant]
     Active Substance: MAGNESIUM GLYCINATE
  42. LIDOCAINE [Concomitant]
     Active Substance: LIDOCAINE
  43. LEVOCETIRIZINE DIHYDROCHLORIDE [Concomitant]
     Active Substance: LEVOCETIRIZINE DIHYDROCHLORIDE
  44. LEVALBUTEROL HYDROCHLORIDE [Concomitant]
     Active Substance: LEVALBUTEROL HYDROCHLORIDE
  45. KETOTIFEN FUMARATE [Concomitant]
     Active Substance: KETOTIFEN FUMARATE
  46. GABAPENTIN [Concomitant]
     Active Substance: GABAPENTIN
  47. AJOVY [Concomitant]
     Active Substance: FREMANEZUMAB-VFRM
  48. UNSPECIFIED INGREDIENT [Concomitant]
     Active Substance: UNSPECIFIED INGREDIENT

REACTIONS (4)
  - Urinary tract infection [Unknown]
  - Nausea [Recovered/Resolved]
  - Intentional dose omission [Unknown]
  - Wrong technique in product usage process [Not Recovered/Not Resolved]

NARRATIVE: CASE EVENT DATE: 20240101
